FAERS Safety Report 9150646 (Version 1)
Quarter: 2013Q1

REPORT INFORMATION
  Report Type: Spontaneous
  Country: US (occurrence: None)
  Receive Date: 20130305
  Receipt Date: 20130305
  Transmission Date: 20140127
  Serious: Yes (Life-Threatening, Hospitalization)
  Sender: FDA-Public Use
  Company Number: None

PATIENT
  Age: 43 Year
  Sex: Female
  Weight: 74.39 kg

DRUGS (1)
  1. EMOQUETTE [Suspect]
     Indication: MENSTRUAL DISORDER
     Dosage: 1 DOSE ONCE PO
     Route: 048
     Dates: start: 20130113, end: 20130117

REACTIONS (2)
  - Deep vein thrombosis [None]
  - Pulmonary embolism [None]
